FAERS Safety Report 9048292 (Version 2)
Quarter: 2013Q1

REPORT INFORMATION
  Report Type: Spontaneous
  Country: US (occurrence: US)
  Receive Date: 20130204
  Receipt Date: 20130305
  Transmission Date: 20140127
  Serious: No
  Sender: FDA-Public Use
  Company Number: US-AMGEN-USASP2013001812

PATIENT
  Age: 42 Year
  Sex: Female
  Weight: 60.77 kg

DRUGS (1)
  1. ENBREL [Suspect]
     Indication: ANKYLOSING SPONDYLITIS
     Dosage: 50 MG, QWK
     Route: 058
     Dates: start: 20130101

REACTIONS (3)
  - Eye pruritus [Recovered/Resolved]
  - Pyrexia [Recovered/Resolved]
  - Sneezing [Recovered/Resolved]
